FAERS Safety Report 7564488-X (Version None)
Quarter: 2011Q2

REPORT INFORMATION
  Report Type: 
  Country: None (occurrence: None)
  Receive Date: 20110622
  Receipt Date: 20110620
  Transmission Date: 20111010
  Serious: Yes (Death)
  Sender: FDA-Public Use
  Company Number: PHHY2011US40966

PATIENT
  Sex: Male

DRUGS (1)
  1. SANDOSTATIN LAR [Suspect]
     Indication: METASTASES TO LIVER
     Dosage: 30 MG, QMO
     Route: 030

REACTIONS (5)
  - NEOPLASM MALIGNANT [None]
  - DECREASED APPETITE [None]
  - DIARRHOEA [None]
  - HYPOPHAGIA [None]
  - ASTHENIA [None]
